FAERS Safety Report 6337306-5 (Version None)
Quarter: 2009Q3

REPORT INFORMATION
  Report Type: 
  Country: None (occurrence: None)
  Receive Date: 20090828
  Receipt Date: 20090828
  Transmission Date: 20100115
  Serious: Yes (Other)
  Sender: FDA-Public Use
  Company Number: None

PATIENT
  Age: 84 Year
  Sex: Female
  Weight: 79.3795 kg

DRUGS (1)
  1. METFORMIN HCL [Suspect]
     Indication: TYPE 2 DIABETES MELLITUS
     Dosage: 1 TABLET 1 MORNING, 1 SUPPER PO
     Route: 048
     Dates: start: 20090819, end: 20090824

REACTIONS (17)
  - ABDOMINAL DISCOMFORT [None]
  - ABDOMINAL PAIN UPPER [None]
  - ASTHENIA [None]
  - CHILLS [None]
  - DIARRHOEA [None]
  - DYSGEUSIA [None]
  - DYSPEPSIA [None]
  - FATIGUE [None]
  - FEELING COLD [None]
  - GINGIVAL SWELLING [None]
  - HAEMATOCHEZIA [None]
  - HEADACHE [None]
  - NAUSEA [None]
  - ORAL PAIN [None]
  - OROPHARYNGEAL PAIN [None]
  - PYREXIA [None]
  - SOMNOLENCE [None]
